FAERS Safety Report 18307000 (Version 2)
Quarter: 2020Q4

REPORT INFORMATION
  Report Type: Spontaneous
  Country: US (occurrence: US)
  Receive Date: 20200924
  Receipt Date: 20201120
  Transmission Date: 20210113
  Serious: Yes (Other)
  Sender: FDA-Public Use
  Company Number: US-AMNEAL PHARMACEUTICALS-2020-AMRX-02041

PATIENT
  Age: 1 Year
  Sex: Male
  Weight: 10 kg

DRUGS (5)
  1. VIGABATRIN. [Suspect]
     Active Substance: VIGABATRIN
     Dosage: UNK (INCREASE OF VIGABATRIN)
     Route: 048
  2. VIGABATRIN. [Suspect]
     Active Substance: VIGABATRIN
     Dosage: 500 MILLIGRAM, BID (DISSOLVE 1 PACKET INTO 10ML OF WATER AND GIVE 10ML)
     Route: 048
  3. VIGABATRIN. [Suspect]
     Active Substance: VIGABATRIN
     Dosage: 352 MILLIGRAM, BID (DISSOLVE 1 PACKET INTO 10ML OF WATER AND GIVE 7.04ML)
     Route: 065
  4. VIGABATRIN. [Suspect]
     Active Substance: VIGABATRIN
     Indication: INFANTILE SPASMS
     Dosage: 176 MILLIGRAM, BID (DISSOLVE 1 PACKET INTO 10ML OF WATER AND GIVE 3.52 ML)
     Route: 065
  5. VIGABATRIN. [Suspect]
     Active Substance: VIGABATRIN
     Dosage: 550 MILLIGRAM, BID (DISSOLVE 2 PACKETS OF MEDICINE IN 20ML OF WATER AND GIVE/TAKE 11ML )
     Route: 065

REACTIONS (7)
  - Product dose omission issue [Unknown]
  - Eating disorder [Unknown]
  - Electroencephalogram abnormal [Unknown]
  - Tremor [Unknown]
  - Vomiting [Unknown]
  - Insomnia [Unknown]
  - Muscle spasms [Unknown]

NARRATIVE: CASE EVENT DATE: 202007
